FAERS Safety Report 6496807-X (Version None)
Quarter: 2009Q4

REPORT INFORMATION
  Report Type: 
  Country: None (occurrence: None)
  Receive Date: 20091125
  Receipt Date: 20090403
  Transmission Date: 20100525
  Serious: Yes (Other)
  Sender: FDA-Public Use
  Company Number: 2009BH005380

PATIENT
  Age: 65 Year
  Sex: Male
  Weight: 142.8831 kg

DRUGS (7)
  1. DIANEAL [Suspect]
     Indication: PERITONEAL DIALYSIS
     Dosage: 11.2 L; EVERY DAY; IP
     Route: 033
     Dates: start: 20060128
  2. BUMEX [Concomitant]
  3. CAPITROL [Concomitant]
  4. COREG [Concomitant]
  5. GENTAMICIN [Concomitant]
  6. GLYBURIDE [Concomitant]
  7. HEPARIN [Concomitant]

REACTIONS (1)
  - PERITONITIS BACTERIAL [None]
